FAERS Safety Report 4282924-1 (Version None)
Quarter: 2004Q1

REPORT INFORMATION
  Report Type: 
  Country: None (occurrence: None)
  Receive Date: 20040130
  Receipt Date: 20031125
  Transmission Date: 20041129
  Serious: No
  Sender: FDA-Public Use
  Company Number: US-BRISTOL-MYERS SQUIBB COMPANY-12443610

PATIENT
  Age: 30 Year
  Sex: Female

DRUGS (2)
  1. SERZONE [Suspect]
     Indication: DEPRESSION
     Dosage: ^POSSIBLY EVEN BEFORE THIS DATE^;100 MG TAB BID,200 MG TAB HS;STOPPED X3 DAYS,RESTARTED AT SAME DOSE
     Route: 048
     Dates: start: 20030523
  2. SERZONE [Suspect]
     Indication: PANIC DISORDER
     Dosage: ^POSSIBLY EVEN BEFORE THIS DATE^;100 MG TAB BID,200 MG TAB HS;STOPPED X3 DAYS,RESTARTED AT SAME DOSE
     Route: 048
     Dates: start: 20030523

REACTIONS (1)
  - DRUG EXPOSURE DURING PREGNANCY [None]
